FAERS Safety Report 7465092-4 (Version None)
Quarter: 2011Q2

REPORT INFORMATION
  Report Type: 
  Country: None (occurrence: None)
  Receive Date: 20110509
  Receipt Date: 20110426
  Transmission Date: 20111010
  Serious: Yes (Hospitalization)
  Sender: FDA-Public Use
  Company Number: DE-JNJFOC-20061105958

PATIENT
  Age: 19 Year
  Sex: Male
  Weight: 68 kg

DRUGS (10)
  1. PLACEBO [Suspect]
     Dosage: WEEK 8 GIVEN AS 2 SC INJECTIONS, 1 CONTAINING 0.5 ML AND 1 CONTAINING 1.0 ML
     Route: 058
  2. TRAMAGIT RETARD [Concomitant]
     Route: 048
  3. PIROXICAM [Concomitant]
  4. TRAMAGIT TROPFEN [Concomitant]
     Route: 048
  5. DICLOFENAC [Concomitant]
     Route: 054
  6. PLACEBO [Suspect]
     Dosage: WEEK 0 GIVEN AS 2 SC INJECTIONS, 1 CONTAINING 0.5 ML AND 1 CONTAINING 1.0 ML
     Route: 058
  7. INDOMETHACIN [Concomitant]
     Route: 048
  8. PLACEBO [Suspect]
     Indication: ANKYLOSING SPONDYLITIS
     Dosage: WEEK 4 GIVEN AS 2 SC INJECTIONS, 1 CONTAINING 0.5 ML AND 1 CONTAINING 1.0 ML
     Route: 058
  9. NOVALGIN [Concomitant]
     Route: 048
  10. NOVALGIN [Concomitant]
     Route: 048

REACTIONS (1)
  - CHRONIC TONSILLITIS [None]
